FAERS Safety Report 8538880-0 (Version None)
Quarter: 2012Q3

REPORT INFORMATION
  Report Type: 
  Country: None (occurrence: None)
  Receive Date: 20120726
  Receipt Date: 20120718
  Transmission Date: 20120928
  Serious: Yes (Hospitalization, Other)
  Sender: FDA-Public Use
  Company Number: US-ASTRAZENECA-2011SE32185

PATIENT
  Age: 50 Year
  Sex: Female
  Weight: 83.9 kg

DRUGS (30)
  1. NEXIUM [Suspect]
     Route: 048
     Dates: start: 20070725
  2. NEXIUM [Suspect]
     Route: 048
     Dates: start: 20060306
  3. FIBER SUPPLEMENT [Concomitant]
  4. PROPO-N/APAP [Concomitant]
     Dosage: 100-650 TAB
     Dates: start: 20050221
  5. CELEBREX [Concomitant]
  6. PEPCID [Concomitant]
  7. IBUPROFEN [Concomitant]
     Dosage: AS NEEDED
     Dates: start: 20090601
  8. VIVELLE-DOT [Concomitant]
     Dosage: 0.1 MG DIS
     Dates: start: 20060220
  9. LYRICA [Concomitant]
     Dates: start: 20110610
  10. GABAPENTIN [Concomitant]
  11. SUDAFED 12 HOUR [Concomitant]
     Indication: SINUS CONGESTION
     Dosage: AS NEEDED
  12. CEPHADYN [Concomitant]
     Dosage: 650-50
  13. ACETAMINOPHEN AND HYDROCODONE BITARTRATE [Concomitant]
     Dosage: 5-500 MG
     Dates: start: 20060127
  14. KOMASIDINE [Concomitant]
     Indication: ULCER
     Dates: start: 20110610
  15. NEXIUM [Suspect]
     Indication: GASTROOESOPHAGEAL REFLUX DISEASE
     Route: 048
     Dates: start: 20050117
  16. NEXIUM [Suspect]
     Route: 048
     Dates: start: 20060101, end: 20060101
  17. ZANTAC [Concomitant]
     Route: 048
     Dates: start: 20120105
  18. IBUPROFEN [Concomitant]
     Indication: HEADACHE
     Dates: start: 20060227
  19. IBUPROFEN [Concomitant]
     Route: 048
     Dates: start: 20060306
  20. PHENAZOPYRID PLUS [Concomitant]
     Dates: start: 20060301
  21. NEXIUM [Suspect]
     Route: 048
     Dates: start: 20060201, end: 20060201
  22. ZANTAC [Concomitant]
     Dosage: 75 MG TO 150 MG
  23. VITAMINS SUPPLEMENTS [Concomitant]
  24. PREMARIN [Concomitant]
     Route: 048
     Dates: start: 20060201, end: 20090601
  25. TYLENOL [Concomitant]
     Indication: HEADACHE
     Dosage: AS NEEDED
  26. NEXIUM [Suspect]
     Route: 048
     Dates: start: 20060201, end: 20110401
  27. TAGAMET [Concomitant]
  28. ETODOLAC [Concomitant]
     Dates: start: 20060123
  29. NESCON PD [Concomitant]
     Dosage: 25-275 MG
     Dates: start: 20060123
  30. SULFASALAZINE [Concomitant]

REACTIONS (26)
  - OSTEOPOROTIC FRACTURE [None]
  - OSTEOARTHRITIS [None]
  - BONE DENSITY DECREASED [None]
  - ABDOMINAL PAIN [None]
  - DUODENAL ULCER [None]
  - GASTRIC ULCER [None]
  - COLITIS ISCHAEMIC [None]
  - TARSAL TUNNEL SYNDROME [None]
  - GASTRITIS EROSIVE [None]
  - OESOPHAGEAL ULCER [None]
  - HIATUS HERNIA [None]
  - COMPLEX REGIONAL PAIN SYNDROME [None]
  - HYPOKINESIA [None]
  - SPINAL OSTEOARTHRITIS [None]
  - INTESTINAL HAEMORRHAGE [None]
  - ABDOMINAL ADHESIONS [None]
  - MONONEUROPATHY [None]
  - FOOT FRACTURE [None]
  - EXOSTOSIS [None]
  - OSTEOPOROSIS [None]
  - ABASIA [None]
  - DEPRESSION [None]
  - PARAESTHESIA [None]
  - LOWER LIMB FRACTURE [None]
  - QUALITY OF LIFE DECREASED [None]
  - EROSIVE DUODENITIS [None]
